FAERS Safety Report 11105421 (Version 1)
Quarter: 2015Q2

REPORT INFORMATION
  Report Type: Not Available
  Country: US (occurrence: US)
  Receive Date: 20150512
  Receipt Date: 20150512
  Transmission Date: 20150821
  Serious: No
  Sender: FDA-Public Use
  Company Number: US-LUPIN PHARMACEUTICALS INC.-E2B_00003393

PATIENT
  Age: 5 Year
  Sex: Male

DRUGS (1)
  1. CEFDINIR FOR ORAL SUSPENSION USP 250 MG /5 ML [Suspect]
     Active Substance: CEFDINIR
     Indication: STREPTOCOCCAL INFECTION
     Dosage: 250 MG/5ML HALF TEASPOON TWICE DAILY
     Dates: start: 20150320

REACTIONS (1)
  - Incorrect product storage [Not Recovered/Not Resolved]
